FAERS Safety Report 4499691-9 (Version None)
Quarter: 2004Q4

REPORT INFORMATION
  Report Type: 
  Country: None (occurrence: None)
  Receive Date: 20041108
  Receipt Date: 20041025
  Transmission Date: 20050328
  Serious: Yes (Other)
  Sender: FDA-Public Use
  Company Number: DEU-2004-0001006

PATIENT
  Age: 65 Year
  Sex: Male
  Weight: 51 kg

DRUGS (5)
  1. PALLADONE [Suspect]
     Indication: PAIN
     Dosage: SEE IMAGE
     Route: 048
     Dates: start: 20000901, end: 20040801
  2. PALLADONE [Suspect]
     Indication: PAIN
     Dosage: SEE IMAGE
     Route: 048
     Dates: start: 20030501, end: 20040801
  3. PALLADONE [Suspect]
     Indication: PAIN
     Dosage: 8 MG, BID
     Dates: start: 19980801, end: 20000801
  4. DICLOFENAC SODIUM [Concomitant]
  5. TRAMADOL HCL [Concomitant]

REACTIONS (1)
  - ANORGASMIA [None]
